APPROVED DRUG PRODUCT: VOTRIENT
Active Ingredient: PAZOPANIB HYDROCHLORIDE
Strength: EQ 200MG BASE
Dosage Form/Route: TABLET;ORAL
Application: N022465 | Product #001 | TE Code: AB
Applicant: NOVARTIS PHARMACEUTICALS CORP
Approved: Oct 19, 2009 | RLD: Yes | RS: Yes | Type: RX